FAERS Safety Report 8569112 (Version 2)
Quarter: 2014Q1

REPORT INFORMATION
  Report Type: Spontaneous
  Country: US (occurrence: None)
  Receive Date: 20120323
  Receipt Date: 20130305
  Transmission Date: 20141002
  Serious: Yes (Other)
  Sender: FDA-Public Use
  Company Number: 163-21880-11113800

PATIENT
  Age: 77 Year
  Sex: Female

DRUGS (24)
  1. POLYETHYLENE GLYCOL (MACROGOL) (POWDER) [Concomitant]
  2. POTASSIUM CHLORIDE (TABLETS) [Concomitant]
  3. PROCHLORPERAZINE (TABLETS) [Concomitant]
  4. REVLIMID [Suspect]
     Indication: PLASMA CELL MYELOMA
     Dosage: 25 MG, 1 IN 1 D, PO
     Route: 048
     Dates: start: 201106, end: 20110629
  5. SENNA (TABLETS) [Concomitant]
  6. DEXAMETHASONE (TABLETS) [Concomitant]
  7. VELCADE (BORTEZOMIB) (INJECTION) [Concomitant]
  8. ZOMETA (ZOLEDRONIC ACID) (INJECTION) [Concomitant]
  9. INSULIN GLARGINE (INJECTION) [Concomitant]
  10. ACYCLOVIR (ACICLOVIR) (TABLETS) [Concomitant]
  11. AMLODIPINE (TABLETS) [Concomitant]
  12. ASPIRIN (ACETYLSALICYLIC ACID) (TABLETS) [Concomitant]
  13. CLOPIDOGREL (TABLETS) [Concomitant]
  14. FERROUS SULFATE (TABLETS) [Concomitant]
  15. FUROSEMIDE (TABLETS) [Concomitant]
  16. HYDROCODONE (TABLETS) [Concomitant]
  17. LEVETIRACETAM (TABLETS) [Concomitant]
  18. LOSARTAN (TABLETS) [Concomitant]
  19. LOVASTATIN (TABLETS) [Concomitant]
  20. METOPROLOL SUCCINATE (TABLETS) [Concomitant]
  21. MORPHINE (CAPSULES) [Concomitant]
  22. MULTIPLE VITAMIN (MULTIVITAMINS) (TABLETS) [Concomitant]
  23. NEURONTIN (GABAPENTIN) CAPSULES [Concomitant]
  24. ONDANSETRON (TABLETS) [Concomitant]

REACTIONS (1)
  - Pancytopenia [None]
